FAERS Safety Report 4382242-7 (Version None)
Quarter: 2004Q2

REPORT INFORMATION
  Report Type: 
  Country: None (occurrence: None)
  Receive Date: 20040615
  Receipt Date: 20040604
  Transmission Date: 20050107
  Serious: Yes (Hospitalization)
  Sender: FDA-Public Use
  Company Number: 2004217075US

PATIENT
  Age: 62 Year
  Sex: Male
  Weight: 141 kg

DRUGS (15)
  1. ESTRAMUSTINE PHOSPHATE (ESTRAMUSTINE PHOSPHATE) CAPSULE [Suspect]
     Indication: PROSTATE CANCER
     Dosage: 140 MG, TID, D1-3,8 0,15 7Q4WKS, ORAL
     Route: 048
     Dates: start: 20040226, end: 20040521
  2. CELEBREX [Suspect]
     Indication: PROSTATE CANCER
     Dosage: 200 MG, BID, ORAL
     Route: 048
     Dates: start: 20040226, end: 20040521
  3. PACLITAXEL [Suspect]
     Indication: PROSTATE CANCER
     Dosage: 90 MG/M2,9 + 16,Q4WK,IV
     Route: 042
     Dates: start: 20040226, end: 20040521
  4. METOPROLOL TARTRATE [Concomitant]
  5. ACCUPRIL [Concomitant]
  6. COUMADIN [Concomitant]
  7. LIPITOR [Concomitant]
  8. COMPAZINE [Concomitant]
  9. ALDACTONE [Concomitant]
  10. ASPIRIN [Concomitant]
  11. LASIX [Concomitant]
  12. DIGOXIN [Concomitant]
  13. APRESOLINE [Concomitant]
  14. INSULIN [Concomitant]
  15. ISOSORBIDE (ISOSORBIDE) [Concomitant]

REACTIONS (8)
  - ATAXIA [None]
  - ATRIOVENTRICULAR BLOCK FIRST DEGREE [None]
  - BUNDLE BRANCH BLOCK RIGHT [None]
  - DIABETIC NEUROPATHY [None]
  - DRUG TOXICITY [None]
  - ELECTROCARDIOGRAM QRS COMPLEX PROLONGED [None]
  - METABOLIC DISORDER [None]
  - PERIPHERAL SENSORY NEUROPATHY [None]
